FAERS Safety Report 6912013-6 (Version None)
Quarter: 2010Q3

REPORT INFORMATION
  Report Type: 
  Country: None (occurrence: None)
  Receive Date: 20100806
  Receipt Date: 20071025
  Transmission Date: 20110219
  Serious: No
  Sender: FDA-Public Use
  Company Number: US-PFIZER INC-2007092833

PATIENT
  Sex: Male

DRUGS (4)
  1. GLIPIZIDE [Suspect]
  2. GLUCOPHAGE [Suspect]
  3. ACTOS [Suspect]
  4. SITAGLIPTIN [Suspect]

REACTIONS (2)
  - BLOOD GLUCOSE DECREASED [None]
  - BLOOD GLUCOSE INCREASED [None]
